FAERS Safety Report 18274535 (Version 3)
Quarter: 2020Q4

REPORT INFORMATION
  Report Type: Spontaneous
  Country: JP (occurrence: JP)
  Receive Date: 20200916
  Receipt Date: 20201005
  Transmission Date: 20210113
  Serious: No
  Sender: FDA-Public Use
  Company Number: JP-JNJFOC-20200839696

PATIENT
  Age: 10 Decade
  Sex: Female

DRUGS (3)
  1. DUROTEP [Suspect]
     Active Substance: FENTANYL
  2. DUROTEP [Suspect]
     Active Substance: FENTANYL
  3. DUROTEP [Suspect]
     Active Substance: FENTANYL
     Indication: CANCER PAIN
     Dosage: DOSE UNKNOWN
     Route: 062

REACTIONS (3)
  - Product adhesion issue [Unknown]
  - Off label use [Unknown]
  - Inappropriate schedule of product administration [Unknown]
